FAERS Safety Report 10645030 (Version 1)
Quarter: 2014Q4

REPORT INFORMATION
  Report Type: Spontaneous
  Country: US (occurrence: None)
  Receive Date: 20141210
  Receipt Date: 20141210
  Transmission Date: 20150529
  Serious: Yes (Life-Threatening)
  Sender: FDA-Public Use
  Company Number: None

PATIENT
  Age: 15 Year
  Sex: Male
  Weight: 67.3 kg

DRUGS (2)
  1. IBUPROFEN. [Suspect]
     Active Substance: IBUPROFEN
     Indication: HYPERSENSITIVITY
     Dosage: 200 MG 2-TABS, BID, ORAL
     Route: 048
     Dates: start: 20141207
  2. PHENYLEPHRINE [Suspect]
     Active Substance: PHENYLEPHRINE\PHENYLEPHRINE HYDROCHLORIDE
     Indication: HYPERSENSITIVITY
     Dosage: 10 MG -2 TABS, BID, ORAL
     Route: 048
     Dates: start: 20141207

REACTIONS (10)
  - Throat tightness [None]
  - Pruritus [None]
  - Feeling cold [None]
  - Lip swelling [None]
  - Generalised erythema [None]
  - Cold sweat [None]
  - Hypersensitivity [None]
  - Blood pressure decreased [None]
  - Oxygen saturation decreased [None]
  - Asthenia [None]

NARRATIVE: CASE EVENT DATE: 20141207
